FAERS Safety Report 15602790 (Version 2)
Quarter: 2018Q4

REPORT INFORMATION
  Report Type: Report from Study
  Country: US (occurrence: US)
  Receive Date: 20181109
  Receipt Date: 20181126
  Transmission Date: 20190205
  Serious: Yes (Hospitalization)
  Sender: FDA-Public Use
  Company Number: US-EXELIXIS-CABO-18016862

PATIENT
  Age: 68 Year
  Sex: Female

DRUGS (16)
  1. CABOMETYX [Suspect]
     Active Substance: CABOZANTINIB S-MALATE
     Dosage: 40 MG, QD
     Route: 048
     Dates: end: 201810
  2. TYLENOL [Concomitant]
     Active Substance: ACETAMINOPHEN
  3. MAGNESIUM [Concomitant]
     Active Substance: MAGNESIUM
  4. LEVOTHYROXINE. [Concomitant]
     Active Substance: LEVOTHYROXINE
  5. SYNTHROID [Concomitant]
     Active Substance: LEVOTHYROXINE SODIUM
  6. CABOMETYX [Suspect]
     Active Substance: CABOZANTINIB S-MALATE
     Dosage: 40 MG, QD
     Route: 048
     Dates: start: 201810
  7. VITAMIN B12 [Concomitant]
     Active Substance: CYANOCOBALAMIN
  8. PROCHLORPERAZINE. [Concomitant]
     Active Substance: PROCHLORPERAZINE
  9. VITAMIN D3 [Concomitant]
     Active Substance: CHOLECALCIFEROL
  10. CABOMETYX [Suspect]
     Active Substance: CABOZANTINIB S-MALATE
     Indication: RENAL CANCER
     Dosage: 60 MG, QD
     Route: 048
     Dates: start: 20170629
  11. LISINOPRIL. [Concomitant]
     Active Substance: LISINOPRIL
  12. IRON [Concomitant]
     Active Substance: IRON
  13. ALEVE [Concomitant]
     Active Substance: NAPROXEN SODIUM
  14. VITAMIN C [Concomitant]
     Active Substance: ASCORBIC ACID
  15. ZOMETA [Concomitant]
     Active Substance: ZOLEDRONIC ACID
  16. POTASSIUM CHLORIDE. [Concomitant]
     Active Substance: POTASSIUM CHLORIDE

REACTIONS (2)
  - Dehydration [Recovered/Resolved]
  - Gastroenteritis [Recovered/Resolved with Sequelae]

NARRATIVE: CASE EVENT DATE: 20181026
